FAERS Safety Report 18474223 (Version 3)
Quarter: 2022Q2

REPORT INFORMATION
  Report Type: Spontaneous
  Country: US (occurrence: US)
  Receive Date: 20201106
  Receipt Date: 20220513
  Transmission Date: 20220720
  Serious: No
  Sender: FDA-Public Use
  Company Number: US-PFIZER INC-2020428464

PATIENT
  Age: 92 Year
  Sex: Female

DRUGS (1)
  1. XELJANZ XR [Suspect]
     Active Substance: TOFACITINIB CITRATE
     Dosage: 11 MG, 1X/DAY (AS DIRECTED BY PHYSICIAN)
     Route: 048

REACTIONS (2)
  - Arthritis [Unknown]
  - Hypoacusis [Unknown]
